FAERS Safety Report 5339452-1 (Version None)
Quarter: 2007Q2

REPORT INFORMATION
  Report Type: 
  Country: None (occurrence: None)
  Receive Date: 20070525
  Receipt Date: 20070514
  Transmission Date: 20071010
  Serious: Yes (Hospitalization)
  Sender: FDA-Public Use
  Company Number: CIP07000903

PATIENT
  Age: 61 Year
  Sex: Female

DRUGS (4)
  1. FURADANTIN [Suspect]
     Indication: URINARY TRACT INFECTION
     Dosage: OLNE DOSE FORM DAILY, ORAL
     Route: 048
     Dates: start: 20070103, end: 20070113
  2. VEINAMITOL(TROXERUTIN) [Suspect]
     Dosage: 1000 MG/M2 ML, TWICE DAILY, ORAL
     Route: 048
     Dates: start: 20070115, end: 20070120
  3. FLECAINIDE ACETATE [Concomitant]
  4. GINKOR (TROXERUTIN, GINKGO BILOBA EXTRACT) [Concomitant]

REACTIONS (7)
  - ABDOMINAL PAIN [None]
  - ANOREXIA [None]
  - COLONIC POLYP [None]
  - DIARRHOEA [None]
  - GAMMA-GLUTAMYLTRANSFERASE INCREASED [None]
  - NAUSEA [None]
  - RECTAL HAEMORRHAGE [None]
